FAERS Safety Report 9946790 (Version 1)
Quarter: 2014Q1

REPORT INFORMATION
  Report Type: Report from Study
  Country: US (occurrence: US)
  Receive Date: 20140303
  Receipt Date: 20140303
  Transmission Date: 20141002
  Serious: No
  Sender: FDA-Public Use
  Company Number: US-ABBVIE-13P-163-1063957-00

PATIENT
  Sex: Female
  Weight: 68.1 kg

DRUGS (7)
  1. HUMIRA [Suspect]
     Indication: PSORIASIS
     Dates: start: 20120714, end: 201301
  2. CALCIUM PLUS VITAMIN D [Concomitant]
     Indication: MINERAL SUPPLEMENTATION
  3. CITALOPRAM [Concomitant]
     Indication: DEPRESSION
  4. FISH OIL [Concomitant]
     Indication: SUPPLEMENTATION THERAPY
  5. MULTIVITAMIN [Concomitant]
     Indication: VITAMIN SUPPLEMENTATION
  6. OSTEO BI-FLEX [Concomitant]
     Indication: SUPPLEMENTATION THERAPY
  7. VITAMIN D3 [Concomitant]
     Indication: SUPPLEMENTATION THERAPY

REACTIONS (1)
  - Drug ineffective [Not Recovered/Not Resolved]
